FAERS Safety Report 7587481-X (Version None)
Quarter: 2011Q3

REPORT INFORMATION
  Report Type: 
  Country: None (occurrence: None)
  Receive Date: 20110704
  Receipt Date: 20110624
  Transmission Date: 20111222
  Serious: No
  Sender: FDA-Public Use
  Company Number: US-BIOGENIDEC-2011BI023644

PATIENT
  Sex: Female

DRUGS (2)
  1. AVONEX [Suspect]
     Indication: MULTIPLE SCLEROSIS
     Route: 030
     Dates: start: 20061120
  2. AVONEX [Suspect]
     Route: 030

REACTIONS (4)
  - DRUG INEFFECTIVE [None]
  - TREMOR [None]
  - NUCLEAR MAGNETIC RESONANCE IMAGING ABNORMAL [None]
  - AGRAPHIA [None]
